FAERS Safety Report 9781262 (Version 1)
Quarter: 2013Q4

REPORT INFORMATION
  Report Type: Spontaneous
  Country: US (occurrence: None)
  Receive Date: 20131223
  Receipt Date: 20131223
  Transmission Date: 20140711
  Serious: No
  Sender: FDA-Public Use
  Company Number: None

PATIENT
  Age: 63 Year
  Sex: Female

DRUGS (1)
  1. FORTEO 600MCG LILLY [Suspect]
     Route: 048
     Dates: start: 20130710, end: 20131028

REACTIONS (1)
  - Dizziness [None]
